FAERS Safety Report 4312063-2 (Version None)
Quarter: 2004Q1

REPORT INFORMATION
  Report Type: 
  Country: None (occurrence: None)
  Receive Date: 20040303
  Receipt Date: 19980304
  Transmission Date: 20041129
  Serious: Yes (Death, Hospitalization)
  Sender: FDA-Public Use
  Company Number: NL-JNJFOC-20031202533

PATIENT
  Age: 28 Year
  Sex: Female
  Weight: 84 kg

DRUGS (7)
  1. INFLIXIMAB (INFLIXIMAB, RECOMBINANT) LYOPHILIZED POWDER [Suspect]
     Indication: CROHN'S DISEASE
     Dosage: 10 MG/KG, INTRAVENOUS
     Route: 042
     Dates: start: 19930902
  2. IMURAN [Concomitant]
  3. SALOFALK (AMINOSALICYLIC ACID) [Concomitant]
  4. PREDNISONE [Concomitant]
  5. MARVELON (MARVELON) [Concomitant]
  6. KETOKONAZOL (KETOCONAZOLE) CREAM [Concomitant]
  7. METHOTREXATE [Concomitant]

REACTIONS (6)
  - ACUTE MYOCARDIAL INFARCTION [None]
  - CORONARY ARTERY THROMBOSIS [None]
  - FOOD POISONING [None]
  - LYMPHOCYTE PERCENTAGE DECREASED [None]
  - NEUTROPHIL PERCENTAGE INCREASED [None]
  - WHITE BLOOD CELL COUNT INCREASED [None]
